FAERS Safety Report 10108842 (Version 1)
Quarter: 2014Q2

REPORT INFORMATION
  Report Type: Spontaneous
  Country: ES (occurrence: ES)
  Receive Date: 20140425
  Receipt Date: 20140425
  Transmission Date: 20141212
  Serious: Yes (Other)
  Sender: FDA-Public Use
  Company Number: ES-ALEXION PHARMACEUTICALS INC.-A201401136

PATIENT
  Sex: 0

DRUGS (2)
  1. SOLIRIS 300MG [Suspect]
     Indication: HAEMOLYTIC URAEMIC SYNDROME
     Dosage: 600 MG, QW
     Dates: start: 20140314, end: 20140321
  2. DIURETIC                           /00022001/ [Concomitant]
     Indication: POLYURIA
     Dosage: UNK
     Route: 065
     Dates: start: 20140321

REACTIONS (1)
  - Coronary artery thrombosis [Not Recovered/Not Resolved]
